FAERS Safety Report 8213038-3 (Version None)
Quarter: 2012Q1

REPORT INFORMATION
  Report Type: 
  Country: None (occurrence: None)
  Receive Date: 20120315
  Receipt Date: 20120307
  Transmission Date: 20120608
  Serious: Yes (Hospitalization)
  Sender: FDA-Public Use
  Company Number: DE-JNJFOC-20100803951

PATIENT
  Sex: Male

DRUGS (9)
  1. PREDNISOLONE [Suspect]
     Indication: PROSTATE CANCER METASTATIC
     Route: 048
     Dates: start: 20100324
  2. LOSARTAN POTASSIUM [Concomitant]
     Indication: HYPERTENSION
     Route: 048
     Dates: start: 20100416, end: 20100719
  3. SANDOCAL 1000 [Concomitant]
     Indication: OSTEOPOROSIS
     Route: 048
     Dates: start: 20080601
  4. TAMSUBLOCK [Concomitant]
     Indication: URINARY INCONTINENCE
     Route: 048
     Dates: start: 20080601
  5. TROMCARDIN [Concomitant]
     Indication: CARDIOVASCULAR EVENT PROPHYLAXIS
     Route: 048
     Dates: start: 20100306
  6. ZOMETA [Concomitant]
     Indication: METASTASES TO BONE
     Route: 042
     Dates: start: 20080601
  7. ABIRATERONE ACETATE [Suspect]
     Indication: PROSTATE CANCER METASTATIC
     Route: 048
     Dates: start: 20100324
  8. ABIRATERONE ACETATE [Suspect]
     Route: 048
  9. LEUPROLIDE ACETATE [Concomitant]
     Indication: PROSTATE CANCER
     Route: 058
     Dates: start: 20100324

REACTIONS (1)
  - TACHYARRHYTHMIA [None]
